FAERS Safety Report 14961093 (Version 2)
Quarter: 2018Q3

REPORT INFORMATION
  Report Type: Spontaneous
  Country: IN (occurrence: IN)
  Receive Date: 20180531
  Receipt Date: 20180703
  Transmission Date: 20181010
  Serious: Yes (Other)
  Sender: FDA-Public Use
  Company Number: IN-BAXTER-2018BAX015916

PATIENT
  Age: 2 Year
  Sex: Male

DRUGS (1)
  1. FLOSEAL HEMOSTATIC MATRIX [Suspect]
     Active Substance: THROMBIN
     Indication: TISSUE SEALING
     Route: 065

REACTIONS (1)
  - Status epilepticus [Unknown]

NARRATIVE: CASE EVENT DATE: 20180521
